FAERS Safety Report 16140593 (Version 1)
Quarter: 2019Q2

REPORT INFORMATION
  Report Type: Spontaneous
  Country: US (occurrence: US)
  Receive Date: 20190329
  Receipt Date: 20190329
  Transmission Date: 20190711
  Serious: Yes (Hospitalization)
  Sender: FDA-Public Use
  Company Number: None

PATIENT
  Age: 45 Year
  Sex: Female

DRUGS (12)
  1. FOLIC ACID TAB [Concomitant]
     Dates: start: 20150504
  2. MESALAMINE  ENE [Concomitant]
     Dates: start: 20150504
  3. PREDNISONE TAB [Concomitant]
     Active Substance: PREDNISONE
     Dates: start: 20150504
  4. APRISO  CAP [Concomitant]
     Dates: start: 20161217
  5. PROPRANOLOL [Concomitant]
     Active Substance: PROPRANOLOL HYDROCHLORIDE
     Dates: start: 20190328
  6. ENTOCORT EC CAP [Concomitant]
     Dates: start: 20161217
  7. LISINOPRIL TAB [Concomitant]
     Dates: start: 20150504
  8. VITAMIN B-12 TAB [Concomitant]
     Dates: start: 20150504
  9. VITAMIN D3 CAP [Concomitant]
     Dates: start: 20150504
  10. HUMIRA KIT [Concomitant]
     Dates: start: 20161217
  11. IRON TAB [Concomitant]
     Dates: start: 20160504
  12. STELARA [Suspect]
     Active Substance: USTEKINUMAB
     Indication: CROHN^S DISEASE
     Dosage: ?          OTHER FREQUENCY:EVERY 10 WEEKS;?
     Route: 058
     Dates: start: 20171011

REACTIONS (2)
  - Intestinal obstruction [None]
  - Condition aggravated [None]
